FAERS Safety Report 9718190 (Version 1)
Quarter: 2013Q4

REPORT INFORMATION
  Report Type: Spontaneous
  Country: BR (occurrence: BR)
  Receive Date: 20131127
  Receipt Date: 20131127
  Transmission Date: 20140711
  Serious: Yes (Hospitalization)
  Sender: FDA-Public Use
  Company Number: BR-ELI_LILLY_AND_COMPANY-BR201311005998

PATIENT
  Sex: Male

DRUGS (3)
  1. HUMULIN N [Suspect]
     Indication: TYPE 2 DIABETES MELLITUS
     Dosage: 40 IU, EACH MORNING
     Route: 058
     Dates: start: 2011
  2. HUMULIN N [Suspect]
     Dosage: 35 IU, EACH EVENING
     Route: 058
     Dates: start: 2011
  3. CRESTOR [Concomitant]
     Indication: BLOOD CHOLESTEROL
     Dosage: 5 MG, EACH EVENING
     Route: 065
     Dates: start: 201308

REACTIONS (1)
  - Hyperglycaemia [Recovered/Resolved]
